FAERS Safety Report 14814091 (Version 1)
Quarter: 2018Q2

REPORT INFORMATION
  Report Type: Spontaneous
  Country: US (occurrence: US)
  Receive Date: 20180417
  Receipt Date: 20180417
  Transmission Date: 20180711
  Serious: Yes (Disabling)
  Sender: FDA-Public Use
  Company Number: None

PATIENT
  Age: 56 Year
  Sex: Male
  Weight: 74.25 kg

DRUGS (5)
  1. FISH OIL [Concomitant]
     Active Substance: FISH OIL
  2. FLAXSEED [Concomitant]
     Active Substance: FLAX SEED
  3. ARMOUR THYROID [Concomitant]
     Active Substance: THYROID, PORCINE
  4. ONE-A-DAY MULTIVITAMIN [Concomitant]
  5. ELIQUIS [Suspect]
     Active Substance: APIXABAN
     Indication: PULMONARY EMBOLISM
     Dosage: ?          QUANTITY:60 TABLET(S);?
     Route: 048
     Dates: start: 20171004

REACTIONS (5)
  - Anxiety [None]
  - Emotional disorder [None]
  - Decreased appetite [None]
  - Gastrointestinal disorder [None]
  - Depression [None]

NARRATIVE: CASE EVENT DATE: 20180203
